FAERS Safety Report 17916138 (Version 3)
Quarter: 2020Q3

REPORT INFORMATION
  Report Type: Spontaneous
  Country: US (occurrence: US)
  Receive Date: 20200619
  Receipt Date: 20200724
  Transmission Date: 20201103
  Serious: Yes (Hospitalization, Other)
  Sender: FDA-Public Use
  Company Number: US-GLAXOSMITHKLINE-US2020AMR104268

PATIENT
  Age: 39 Year
  Sex: Female
  Weight: 59.68 kg

DRUGS (5)
  1. RITUXAN [Suspect]
     Active Substance: RITUXIMAB
     Indication: PRODUCT USED FOR UNKNOWN INDICATION
     Dosage: UNK
  2. BENLYSTA [Suspect]
     Active Substance: BELIMUMAB
     Indication: SYSTEMIC LUPUS ERYTHEMATOSUS
     Dosage: 625 MG
     Route: 042
     Dates: start: 20200611
  3. HYDROXYCHLOROQUINE SULFATE. [Concomitant]
     Active Substance: HYDROXYCHLOROQUINE SULFATE
     Indication: PRODUCT USED FOR UNKNOWN INDICATION
     Dosage: 200 MG, BID
     Route: 048
     Dates: start: 20160715
  4. PLAQUENIL [Suspect]
     Active Substance: HYDROXYCHLOROQUINE SULFATE
     Indication: SYSTEMIC LUPUS ERYTHEMATOSUS
     Dosage: UNK
  5. AMOXICILLIN. [Suspect]
     Active Substance: AMOXICILLIN
     Indication: PRODUCT USED FOR UNKNOWN INDICATION
     Dosage: UNK

REACTIONS (27)
  - Feeling abnormal [Unknown]
  - Myalgia [Unknown]
  - Paraesthesia [Unknown]
  - Raynaud^s phenomenon [Unknown]
  - Judgement impaired [Unknown]
  - Illness [Unknown]
  - Rash [Unknown]
  - Tinnitus [Unknown]
  - Nervousness [Unknown]
  - Tenderness [Unknown]
  - Fatigue [Not Recovered/Not Resolved]
  - Joint range of motion decreased [Unknown]
  - Depression [Unknown]
  - Mean platelet volume increased [Unknown]
  - Lymphocyte count decreased [Unknown]
  - Coombs positive haemolytic anaemia [Unknown]
  - Drug hypersensitivity [Unknown]
  - Arthralgia [Unknown]
  - Haemoglobin decreased [Recovering/Resolving]
  - Dizziness [Unknown]
  - Hypoaesthesia [Unknown]
  - Swelling [Unknown]
  - Joint warmth [Unknown]
  - Headache [Unknown]
  - Muscular weakness [Unknown]
  - Pruritus [Unknown]
  - Memory impairment [Unknown]

NARRATIVE: CASE EVENT DATE: 202006
